FAERS Safety Report 11415801 (Version 2)
Quarter: 2015Q4

REPORT INFORMATION
  Report Type: Spontaneous
  Country: US (occurrence: US)
  Receive Date: 20150825
  Receipt Date: 20151008
  Transmission Date: 20160304
  Serious: No
  Sender: FDA-Public Use
  Company Number: US-PFIZER INC-2015276586

PATIENT
  Sex: Female

DRUGS (1)
  1. ADVIL [Suspect]
     Active Substance: IBUPROFEN
     Dosage: UNK

REACTIONS (5)
  - Product coating issue [Unknown]
  - Dysphagia [Unknown]
  - Product difficult to swallow [Unknown]
  - Product adhesion issue [Unknown]
  - Drug ineffective [Unknown]
